FAERS Safety Report 7356525-2 (Version None)
Quarter: 2011Q1

REPORT INFORMATION
  Report Type: 
  Country: None (occurrence: None)
  Receive Date: 20110316
  Receipt Date: 20110302
  Transmission Date: 20110831
  Serious: Yes (Other)
  Sender: FDA-Public Use
  Company Number: PHEH2009US02408

PATIENT

DRUGS (16)
  1. AREDIA [Suspect]
     Indication: METASTASES TO BONE
     Dosage: UNK
     Dates: end: 20060201
  2. MS CONTIN [Concomitant]
  3. CELEBREX [Concomitant]
  4. OXYCODONE HCL [Concomitant]
  5. OMEPRAZOLE [Concomitant]
  6. ZOLPIDEM [Concomitant]
     Dosage: UNK
  7. LACTULOSE [Concomitant]
  8. POTASSIUM [Concomitant]
  9. BISACODYL [Concomitant]
  10. DILTIAZEM [Concomitant]
  11. DOCUSATE [Concomitant]
  12. ACETAMINOPHEN [Concomitant]
  13. LEXAPRO [Concomitant]
  14. FUROSEMIDE [Concomitant]
  15. FASLODEX [Concomitant]
  16. BENEFIBER [Concomitant]

REACTIONS (23)
  - OSTEONECROSIS OF JAW [None]
  - GANGRENE [None]
  - DIARRHOEA [None]
  - RECTAL ADENOMA [None]
  - VASCULITIS [None]
  - OSTEOARTHRITIS [None]
  - RECTAL PROLAPSE [None]
  - ACTINIC KERATOSIS [None]
  - SCOLIOSIS [None]
  - URINARY TRACT INFECTION [None]
  - HAEMORRHOIDS [None]
  - EXOSTOSIS [None]
  - DENTAL CARIES [None]
  - ATELECTASIS [None]
  - ACTINIC ELASTOSIS [None]
  - DIAPHRAGMATIC DISORDER [None]
  - GASTROENTERITIS [None]
  - OSTEONECROSIS [None]
  - PERIPHERAL VASCULAR DISORDER [None]
  - SKIN LESION [None]
  - ACTINOMYCOSIS [None]
  - BONE DISORDER [None]
  - SPINAL COMPRESSION FRACTURE [None]
